FAERS Safety Report 5531990-1 (Version None)
Quarter: 2007Q4

REPORT INFORMATION
  Report Type: 
  Country: None (occurrence: None)
  Receive Date: 20071203
  Receipt Date: 20071122
  Transmission Date: 20080405
  Serious: Yes (Other)
  Sender: FDA-Public Use
  Company Number: JP-MERCK-0711USA03084

PATIENT
  Age: 81 Year
  Sex: Female

DRUGS (7)
  1. PEPCID [Suspect]
     Route: 065
     Dates: start: 20060221, end: 20071102
  2. ASPIRIN [Concomitant]
     Route: 065
     Dates: start: 20060221
  3. YOHLACTONE [Concomitant]
     Route: 065
     Dates: start: 20060221
  4. TENORMIN [Concomitant]
     Route: 065
     Dates: start: 20060221
  5. PHENYTOIN [Concomitant]
     Route: 065
     Dates: start: 20060221
  6. MAGNESIUM OXIDE [Concomitant]
     Route: 065
     Dates: start: 20060221
  7. CEFTAZIDIME [Suspect]
     Route: 065
     Dates: start: 20071017, end: 20071022

REACTIONS (6)
  - DECUBITUS ULCER [None]
  - HYPOKALAEMIA [None]
  - TACHYCARDIA [None]
  - TOXIC EPIDERMAL NECROLYSIS [None]
  - URINARY TRACT INFECTION [None]
  - VASOCONSTRICTION [None]
